FAERS Safety Report 8821558 (Version 1)
Quarter: 2012Q4

REPORT INFORMATION
  Report Type: 
  Country: US (occurrence: US)
  Receive Date: 20121002
  Receipt Date: 20121002
  Transmission Date: 20130627
  Serious: Yes (Other)
  Sender: FDA-Public Use
  Company Number: CHPA2012US020460

PATIENT
  Age: 64 Year
  Sex: Female

DRUGS (2)
  1. MYOFLEX ANALGESIC CREME [Suspect]
     Indication: PAIN IN EXTREMITY
     Dosage: small amount, ONCE/SINGLE
     Route: 061
     Dates: start: 2003, end: 2003
  2. ALEVE                              /00256202/ [Concomitant]
     Indication: ARTHRITIS
     Dosage: 1 DF, UNK

REACTIONS (8)
  - Retinal detachment [Recovered/Resolved]
  - Arthropod bite [Recovered/Resolved]
  - Pruritus [Not Recovered/Not Resolved]
  - Skin discolouration [Not Recovered/Not Resolved]
  - Skin mass [Recovered/Resolved]
  - Vitreous floaters [Not Recovered/Not Resolved]
  - Visual acuity reduced [Not Recovered/Not Resolved]
  - Photopsia [Recovered/Resolved]
